FAERS Safety Report 6198135-9 (Version None)
Quarter: 2009Q2

REPORT INFORMATION
  Report Type: 
  Country: None (occurrence: None)
  Receive Date: 20090514
  Receipt Date: 20081104
  Transmission Date: 20091009
  Serious: Yes (Hospitalization, Other)
  Sender: FDA-Public Use
  Company Number: 53956

PATIENT
  Age: 45 Year
  Sex: Male

DRUGS (1)
  1. MITOMYCIN [Suspect]
     Indication: METASTASES TO PERITONEUM
     Dates: start: 20080825

REACTIONS (1)
  - DRUG USE FOR UNKNOWN INDICATION [None]
